FAERS Safety Report 5054888-4 (Version None)
Quarter: 2006Q2

REPORT INFORMATION
  Report Type: 
  Country: None (occurrence: None)
  Receive Date: 20060614
  Receipt Date: 20060209
  Transmission Date: 20061013
  Serious: No
  Sender: FDA-Public Use
  Company Number: US200602002260

PATIENT
  Age: 65 Year
  Sex: Male

DRUGS (3)
  1. CIALIS [Suspect]
     Indication: ERECTILE DYSFUNCTION
     Dosage: 10 MG , AS NEEDED
     Dates: start: 20060130, end: 20060130
  2. CRESTOR [Concomitant]
  3. ASA ((ASPIRIN(ACETYLSALICYLIC ACID) [Concomitant]

REACTIONS (2)
  - DIZZINESS [None]
  - HEADACHE [None]
